FAERS Safety Report 6684600-4 (Version None)
Quarter: 2010Q2

REPORT INFORMATION
  Report Type: 
  Country: None (occurrence: None)
  Receive Date: 20100416
  Receipt Date: 20100405
  Transmission Date: 20101027
  Serious: No
  Sender: FDA-Public Use
  Company Number: DE-ROCHE-697322

PATIENT

DRUGS (1)
  1. ISOTRETINOIN [Suspect]
     Indication: ACNE
     Dosage: ROUTE: REPORTED AS SYSTEMIC ISOTRETINOIN, MEDIAN DAILY DOSE: 20 MG
     Route: 064

REACTIONS (2)
  - LIVE BIRTH [None]
  - NO ADVERSE EVENT [None]
